FAERS Safety Report 10143928 (Version 1)
Quarter: 2014Q2

REPORT INFORMATION
  Report Type: Spontaneous
  Country: BR (occurrence: BR)
  Receive Date: 20140430
  Receipt Date: 20140430
  Transmission Date: 20141212
  Serious: Yes (Other)
  Sender: FDA-Public Use
  Company Number: BR-ABBVIE-14P-020-1229914-00

PATIENT
  Sex: 0

DRUGS (3)
  1. ISOFLURANE [Suspect]
     Indication: PRODUCT USED FOR UNKNOWN INDICATION
  2. SEVOFLURANE [Suspect]
     Indication: PRODUCT USED FOR UNKNOWN INDICATION
  3. NITROUS OXIDE [Suspect]
     Indication: PRODUCT USED FOR UNKNOWN INDICATION

REACTIONS (3)
  - Unevaluable event [Unknown]
  - Unevaluable event [Unknown]
  - Occupational exposure to product [Unknown]
